FAERS Safety Report 15516400 (Version 1)
Quarter: 2018Q4

REPORT INFORMATION
  Report Type: Spontaneous
  Country: US (occurrence: US)
  Receive Date: 20181011
  Receipt Date: 20181011
  Transmission Date: 20190205
  Serious: Yes (Hospitalization)
  Sender: FDA-Public Use
  Company Number: None

PATIENT
  Age: 59 Year
  Sex: Female
  Weight: 121 kg

DRUGS (1)
  1. EXENATIDE ER [Suspect]
     Active Substance: EXENATIDE
     Indication: TYPE 2 DIABETES MELLITUS
     Dosage: ?          OTHER FREQUENCY:WEEKLY;?
     Route: 058

REACTIONS (3)
  - Peripancreatic fluid collection [None]
  - Pancreatitis [None]
  - Lipase decreased [None]

NARRATIVE: CASE EVENT DATE: 20181005
